FAERS Safety Report 9277799 (Version 2)
Quarter: 2013Q2

REPORT INFORMATION
  Report Type: Spontaneous
  Country: US (occurrence: US)
  Receive Date: 20130508
  Receipt Date: 20130611
  Transmission Date: 20140414
  Serious: No
  Sender: FDA-Public Use
  Company Number: US-BIOGENIDEC-2013BI040136

PATIENT
  Age: 47 Year
  Sex: Female

DRUGS (1)
  1. TYSABRI [Suspect]
     Indication: MULTIPLE SCLEROSIS
     Route: 042
     Dates: start: 20130204

REACTIONS (9)
  - Back pain [Recovered/Resolved]
  - Stress [Not Recovered/Not Resolved]
  - Musculoskeletal pain [Recovered/Resolved]
  - Muscle tightness [Not Recovered/Not Resolved]
  - Fungal infection [Not Recovered/Not Resolved]
  - Band sensation [Recovered/Resolved]
  - Balance disorder [Recovered/Resolved]
  - Headache [Recovered/Resolved]
  - Dizziness [Recovered/Resolved]
